FAERS Safety Report 8583214 (Version 2)
Quarter: 2013Q2

REPORT INFORMATION
  Report Type: Spontaneous
  Country: US (occurrence: US)
  Receive Date: 20120529
  Receipt Date: 20130507
  Transmission Date: 20140414
  Serious: Yes (Life-Threatening, Hospitalization)
  Sender: FDA-Public Use
  Company Number: US-BAYER-2012-051550

PATIENT
  Age: 40 Year
  Sex: Female
  Weight: 84.1 kg

DRUGS (12)
  1. YAZ [Suspect]
     Indication: MENORRHAGIA
  2. GIANVI [Suspect]
  3. YASMIN [Suspect]
  4. ATENOLOL [Concomitant]
  5. TOPAMAX [Concomitant]
     Dosage: 50 MG, UNK
  6. SUMATRIPTAN [Concomitant]
     Dosage: 100 MG, UNK
  7. OXYCODONE/APAP [Concomitant]
     Dosage: 7.5-325 TAB
  8. HYDROCODONE W/APAP [Concomitant]
     Dosage: 5-325 MG
  9. KENALOG [Concomitant]
  10. MARCAINE [Concomitant]
  11. NORCO [Concomitant]
  12. IBUPROFEN [Concomitant]

REACTIONS (2)
  - Deep vein thrombosis [None]
  - Pulmonary embolism [None]
